FAERS Safety Report 24212548 (Version 1)
Quarter: 2024Q3

REPORT INFORMATION
  Report Type: Spontaneous
  Country: FR (occurrence: FR)
  Receive Date: 20240815
  Receipt Date: 20240815
  Transmission Date: 20241016
  Serious: Yes (Other)
  Sender: ROCHE
  Company Number: None

PATIENT
  Age: 40 Year
  Sex: Female
  Weight: 135 kg

DRUGS (17)
  1. TOCILIZUMAB [Suspect]
     Active Substance: TOCILIZUMAB
     Indication: Rheumatoid arthritis
     Route: 058
     Dates: start: 20240628
  2. RUPATADINE [Concomitant]
     Active Substance: RUPATADINE
  3. DOLIPRANE [Concomitant]
     Active Substance: ACETAMINOPHEN
  4. CIMZIA [Concomitant]
     Active Substance: CERTOLIZUMAB PEGOL
  5. TOPIRAMATE [Concomitant]
     Active Substance: TOPIRAMATE
  6. GABAPENTIN [Concomitant]
     Active Substance: GABAPENTIN
  7. FORMOTEROL [Concomitant]
     Active Substance: FORMOTEROL
  8. METHOTREXATE [Concomitant]
     Active Substance: METHOTREXATE
  9. ESOMEPRAZOLE [Concomitant]
     Active Substance: ESOMEPRAZOLE
  10. VENTOLIN [Concomitant]
     Active Substance: ALBUTEROL SULFATE
  11. ONDANSETRON [Concomitant]
     Active Substance: ONDANSETRON
  12. HYDROCORTISONE [Concomitant]
     Active Substance: HYDROCORTISONE\HYDROCORTISONE ACETATE
  13. BUDESONIDE [Concomitant]
     Active Substance: BUDESONIDE
  14. DULOXETINE [Concomitant]
     Active Substance: DULOXETINE
  15. LEVOTHYROXINE SODIUM [Concomitant]
     Active Substance: LEVOTHYROXINE SODIUM
  16. FOLIC ACID [Concomitant]
     Active Substance: FOLIC ACID
  17. AMITRIPTYLINE [Concomitant]
     Active Substance: AMITRIPTYLINE

REACTIONS (1)
  - Dysarthria [Recovered/Resolved]

NARRATIVE: CASE EVENT DATE: 20240628
